FAERS Safety Report 10601996 (Version 2)
Quarter: 2014Q4

REPORT INFORMATION
  Report Type: Report from Study
  Country: TR (occurrence: None)
  Receive Date: 20141120
  Receipt Date: 20141126
  Transmission Date: 20150529
  Serious: Yes (Hospitalization)
  Sender: FDA-Public Use
  Company Number: 7334526

PATIENT
  Age: 7 Year
  Sex: Male

DRUGS (3)
  1. SAIZEN [Suspect]
     Active Substance: SOMATROPIN
     Indication: GROWTH HORMONE DEFICIENCY
     Dosage: (0.5 MG, - 2)
     Dates: start: 2011, end: 20141020
  2. EUTHYROX (LEVOTHYROXINE SODIUM) (LEVOTHYROXINE SODIUM) [Suspect]
     Active Substance: LEVOTHYROXINE SODIUM
     Indication: THYROID DISORDER
  3. GENKORT (HYDROCORTISONE) (HYDROCORTISONE) [Concomitant]

REACTIONS (1)
  - Peau d^orange [None]

NARRATIVE: CASE EVENT DATE: 20141020
